FAERS Safety Report 11926807 (Version 2)
Quarter: 2017Q1

REPORT INFORMATION
  Report Type: Spontaneous
  Country: CN (occurrence: CN)
  Receive Date: 20160119
  Receipt Date: 20170130
  Transmission Date: 20170428
  Serious: Yes (Other)
  Sender: FDA-Public Use
  Company Number: CN-PFIZER INC-2016018249

PATIENT
  Age: 33 Year
  Sex: Female
  Weight: 83 kg

DRUGS (1)
  1. HEMABATE [Suspect]
     Active Substance: CARBOPROST TROMETHAMINE
     Indication: LABOUR INDUCTION
     Dosage: 250 UG, 1X/DAY
     Route: 015
     Dates: start: 20150602, end: 20150602

REACTIONS (4)
  - Hypoaesthesia oral [Recovering/Resolving]
  - Product use issue [Unknown]
  - Blood pressure decreased [Recovering/Resolving]
  - Incorrect route of drug administration [Unknown]

NARRATIVE: CASE EVENT DATE: 20150602
